FAERS Safety Report 9797691 (Version 2)
Quarter: 2014Q1

REPORT INFORMATION
  Report Type: Spontaneous
  Country: US (occurrence: US)
  Receive Date: 20140106
  Receipt Date: 20140221
  Transmission Date: 20141002
  Serious: No
  Sender: FDA-Public Use
  Company Number: US-PFIZER INC-2014002510

PATIENT
  Age: 54 Year
  Sex: Female
  Weight: 74.83 kg

DRUGS (1)
  1. ADVIL COLD AND SINUS [Suspect]
     Indication: NASOPHARYNGITIS
     Dosage: 200 MG, ONCE
     Route: 048
     Dates: start: 20140102, end: 20140102

REACTIONS (4)
  - Somnolence [Recovered/Resolved]
  - Abdominal discomfort [Recovered/Resolved]
  - Abdominal pain upper [Unknown]
  - Drug ineffective [Unknown]
